FAERS Safety Report 8564818-6 (Version None)
Quarter: 2012Q3

REPORT INFORMATION
  Report Type: 
  Country: None (occurrence: None)
  Receive Date: 20120803
  Receipt Date: 20120730
  Transmission Date: 20120928
  Serious: Yes (Death)
  Sender: FDA-Public Use
  Company Number: US-CELGENEUS-163-21880-12073257

PATIENT
  Sex: Female

DRUGS (9)
  1. REVLIMID [Suspect]
     Indication: MULTIPLE MYELOMA
     Dosage: 5 MILLIGRAM
     Route: 048
     Dates: start: 20111201, end: 20120101
  2. LOVENOX [Concomitant]
     Route: 065
  3. EPIPEN [Concomitant]
     Route: 065
  4. VALTREX [Concomitant]
     Route: 065
  5. TOPAMAX [Concomitant]
     Route: 065
  6. PULMICORT [Concomitant]
     Route: 065
  7. LIPITOR [Concomitant]
     Route: 065
  8. SYNTHROID [Concomitant]
     Route: 065
  9. BACTRIM [Concomitant]
     Route: 065

REACTIONS (1)
  - DEATH [None]
